FAERS Safety Report 15860636 (Version 1)
Quarter: 2019Q1

REPORT INFORMATION
  Report Type: Other
  Country: IT (occurrence: IT)
  Receive Date: 20190124
  Receipt Date: 20190124
  Transmission Date: 20190417
  Serious: Yes (Other)
  Sender: FDA-Public Use
  Company Number: IT-APOTEX-2019AP006737

PATIENT
  Age: 4 Month
  Sex: Male

DRUGS (16)
  1. QUINIDINE [Suspect]
     Active Substance: QUINIDINE
     Dosage: 50 MG/KG, DAILY REDUCED DOSE AFTER INCREASED QT-INTERVAL; WAS LATER INCREASED TO 70 MG/KG DAILY
     Route: 065
  2. QUINIDINE [Suspect]
     Active Substance: QUINIDINE
     Dosage: 20 MG/KG DAILY
     Route: 065
  3. TOPIRAMATE. [Suspect]
     Active Substance: TOPIRAMATE
     Indication: PARTIAL SEIZURES
     Dosage: 5 MG/KG, DAILY
     Route: 065
  4. LEVETIRACETAM. [Suspect]
     Active Substance: LEVETIRACETAM
     Indication: PARTIAL SEIZURES
     Dosage: 60 MG/KG, DAILY
     Route: 065
  5. QUINIDINE [Suspect]
     Active Substance: QUINIDINE
     Indication: PARTIAL SEIZURES
     Dosage: 8 MG/KG, DAILY, 4 DAYS OF 4 TO 5 MG/KG (TARGET 60 MG/KG)
     Route: 065
  6. QUINIDINE [Suspect]
     Active Substance: QUINIDINE
     Dosage: 35 MG/KG DAILY, AFTER THE SECOND INCREASE TO 50MG/KG, REDUCED TO 35MG/KG
     Route: 065
  7. MIDAZOLAM [Suspect]
     Active Substance: MIDAZOLAM HYDROCHLORIDE
     Indication: PARTIAL SEIZURES
     Dosage: 0.2 MG/KG/HR
     Route: 065
  8. QUINIDINE [Suspect]
     Active Substance: QUINIDINE
     Dosage: 45 MG, DAILY, CURRENTLY MAINTAINED ON 45 MG/KG IN 4 DIVIDED DOSES
     Route: 065
  9. POTASSIUM BROMIDE [Suspect]
     Active Substance: POTASSIUM BROMIDE
     Indication: PARTIAL SEIZURES
     Dosage: UP TO 45 MG/KG/DAY
     Route: 065
  10. QUINIDINE [Suspect]
     Active Substance: QUINIDINE
     Dosage: AFTER THE DOSE INCREASE, IT WAS AGAIN REDUCED DUE TO INCREASED QT-INTERVAL UNKNOWN
     Route: 065
  11. PHENOBARBITAL. [Suspect]
     Active Substance: PHENOBARBITAL
     Dosage: 8 MG/KG  DAILY
     Route: 065
  12. PHENOBARBITAL. [Suspect]
     Active Substance: PHENOBARBITAL
     Dosage: 5 MG/KG  DAILY
     Route: 065
  13. CARBAMAZEPINE. [Concomitant]
     Active Substance: CARBAMAZEPINE
     Indication: PARTIAL SEIZURES
     Route: 065
  14. PYRIDOXINE [Concomitant]
     Active Substance: PYRIDOXINE
     Indication: PARTIAL SEIZURES
     Dosage: 30 MG/KG, UNK
     Route: 048
  15. PHENOBARBITAL. [Suspect]
     Active Substance: PHENOBARBITAL
     Indication: PARTIAL SEIZURES
     Dosage: 3 MG/KG, MG/KG
     Route: 065
  16. CLONAZEPAM. [Concomitant]
     Active Substance: CLONAZEPAM
     Indication: PARTIAL SEIZURES
     Dosage: 2 MG/KG, UNK
     Route: 048

REACTIONS (5)
  - Drug level decreased [Recovered/Resolved]
  - Drug ineffective [Unknown]
  - Atrioventricular block [Unknown]
  - Drug interaction [Recovered/Resolved]
  - Electrocardiogram QT prolonged [Recovered/Resolved]
